FAERS Safety Report 15318895 (Version 1)
Quarter: 2018Q3

REPORT INFORMATION
  Report Type: Spontaneous
  Country: US (occurrence: US)
  Receive Date: 20180820
  Receipt Date: 20180820
  Transmission Date: 20181010
  Serious: Yes (Hospitalization)
  Sender: FDA-Public Use
  Company Number: None

PATIENT
  Age: 44 Year
  Sex: Female
  Weight: 61.23 kg

DRUGS (6)
  1. LISINOPRIL. [Concomitant]
     Active Substance: LISINOPRIL
  2. WOMEN ONE A DAY VITAMIN [Concomitant]
  3. DICLOFENAC SOD EC [Concomitant]
     Active Substance: DICLOFENAC SODIUM
  4. VITAMIN D3 [Concomitant]
     Active Substance: CHOLECALCIFEROL
  5. MIRENA [Suspect]
     Active Substance: LEVONORGESTREL
     Indication: CONTRACEPTION
     Dates: start: 20130218, end: 20180810
  6. METAXALONE. [Concomitant]
     Active Substance: METAXALONE

REACTIONS (3)
  - Device dislocation [None]
  - Complication of device removal [None]
  - Embedded device [None]

NARRATIVE: CASE EVENT DATE: 20180810
